FAERS Safety Report 4525833-2 (Version None)
Quarter: 2004Q4

REPORT INFORMATION
  Report Type: 
  Country: None (occurrence: None)
  Receive Date: 20041124
  Receipt Date: 20031208
  Transmission Date: 20050328
  Serious: Yes (Other)
  Sender: FDA-Public Use
  Company Number: PHEH2003US11193

PATIENT
  Age: 56 Year
  Sex: Male

DRUGS (2)
  1. MIOCHOL-E [Suspect]
     Indication: MIOSIS
     Dosage: ONCE/SINGLE, INTRAOCULAR INJ
     Route: 031
     Dates: start: 20031208, end: 20031208
  2. ALTACE [Concomitant]

REACTIONS (1)
  - SINUS BRADYCARDIA [None]
